FAERS Safety Report 15590519 (Version 4)
Quarter: 2019Q1

REPORT INFORMATION
  Report Type: Spontaneous
  Country: JP (occurrence: JP)
  Receive Date: 20181106
  Receipt Date: 20190206
  Transmission Date: 20190417
  Serious: Yes (Hospitalization, Other)
  Sender: FDA-Public Use
  Company Number: JP-SA-2018SA301922

PATIENT
  Age: 5 Decade
  Sex: Male
  Weight: 70 kg

DRUGS (3)
  1. FABRAZYME [Suspect]
     Active Substance: AGALSIDASE BETA
     Indication: FABRY^S DISEASE
     Dosage: 70 MG/DAY, TWICE A MONTH
     Route: 041
     Dates: start: 201612
  2. FEXOFENADINE HYDROCHLORIDE. [Concomitant]
     Active Substance: FEXOFENADINE HYDROCHLORIDE
     Indication: PRODUCT USED FOR UNKNOWN INDICATION
     Dosage: BEFORE ADMINISTRATION OF ERT
     Route: 065
     Dates: start: 201701
  3. CALONAL [Concomitant]
     Active Substance: ACETAMINOPHEN
     Indication: PRODUCT USED FOR UNKNOWN INDICATION
     Dosage: BEFORE ADMINISTRATION OF ERT
     Route: 065
     Dates: start: 201701

REACTIONS (4)
  - Arrhythmia [Recovered/Resolved]
  - Angina pectoris [Recovered/Resolved]
  - Bipolar I disorder [Unknown]
  - Electrocardiogram ST segment elevation [Recovered/Resolved]

NARRATIVE: CASE EVENT DATE: 201811
